FAERS Safety Report 17166180 (Version 2)
Quarter: 2019Q4

REPORT INFORMATION
  Report Type: Spontaneous
  Country: FR (occurrence: FR)
  Receive Date: 20191217
  Receipt Date: 20191227
  Transmission Date: 20200122
  Serious: Yes (Other)
  Sender: FDA-Public Use
  Company Number: FR-009507513-1912FRA004971

PATIENT
  Age: 63 Year
  Sex: Male
  Weight: 74 kg

DRUGS (2)
  1. KEYTRUDA [Suspect]
     Active Substance: PEMBROLIZUMAB
     Indication: LUNG ADENOCARCINOMA
     Dosage: 200 MILLIGRAM, QD, POWDER FOR SOLUTION TO DILUTE FOR INFUSION
     Route: 042
     Dates: start: 20190521, end: 20191024
  2. TRAMADOL HYDROCHLORIDE. [Suspect]
     Active Substance: TRAMADOL HYDROCHLORIDE
     Indication: PAIN
     Dosage: 300 MILLIGRAM, QD
     Route: 048
     Dates: start: 201902

REACTIONS (3)
  - Sjogren^s syndrome [Not Recovered/Not Resolved]
  - Ageusia [Not Recovered/Not Resolved]
  - Weight decreased [Not Recovered/Not Resolved]

NARRATIVE: CASE EVENT DATE: 201906
